FAERS Safety Report 7812231-9 (Version None)
Quarter: 2011Q4

REPORT INFORMATION
  Report Type: 
  Country: None (occurrence: None)
  Receive Date: 20111011
  Receipt Date: 20110930
  Transmission Date: 20120403
  Serious: Yes (Disabling, Other)
  Sender: FDA-Public Use
  Company Number: 1064822

PATIENT
  Sex: Female

DRUGS (2)
  1. (ALL OTHER THERAPEUTIC PRODUCTS) [Concomitant]
  2. GENTAMICIN SULFATE [Suspect]
     Indication: PRODUCT USED FOR UNKNOWN INDICATION
     Dosage: VIA A PIC-LINE

REACTIONS (11)
  - DIZZINESS [None]
  - DISTURBANCE IN ATTENTION [None]
  - BALANCE DISORDER [None]
  - ABASIA [None]
  - IMPAIRED DRIVING ABILITY [None]
  - TOXICITY TO VARIOUS AGENTS [None]
  - VERTIGO [None]
  - CONTUSION [None]
  - HAEMATOMA [None]
  - NEUROPATHY PERIPHERAL [None]
  - WOUND [None]
